FAERS Safety Report 8885502 (Version 2)
Quarter: 2012Q4

REPORT INFORMATION
  Report Type: 
  Country: US (occurrence: US)
  Receive Date: 20121101
  Receipt Date: 20121211
  Transmission Date: 20130627
  Serious: Yes (Other)
  Sender: FDA-Public Use
  Company Number: US-PFIZER INC-2012269855

PATIENT
  Sex: Male

DRUGS (1)
  1. VIAGRA [Suspect]
     Dosage: 100 mg, UNK

REACTIONS (2)
  - Acquired immunodeficiency syndrome [Unknown]
  - Memory impairment [Unknown]
